FAERS Safety Report 24835076 (Version 2)
Quarter: 2025Q1

REPORT INFORMATION
  Report Type: Spontaneous
  Country: US (occurrence: US)
  Receive Date: 20250113
  Receipt Date: 20250210
  Transmission Date: 20250409
  Serious: Yes (Hospitalization, Other)
  Sender: CSL BEHRING
  Company Number: US-BEH-2025190964

PATIENT
  Age: 69 Year
  Sex: Female
  Weight: 84.6 kg

DRUGS (2)
  1. MIRCERA [Suspect]
     Active Substance: METHOXY POLYETHYLENE GLYCOL-EPOETIN BETA
     Indication: Nephrogenic anaemia
     Dosage: 200 ?G, QOW
     Route: 042
     Dates: start: 20241202, end: 20241231
  2. MIRCERA [Suspect]
     Active Substance: METHOXY POLYETHYLENE GLYCOL-EPOETIN BETA
     Dosage: 200 ?G, QOW
     Route: 042
     Dates: start: 20241216, end: 20241231

REACTIONS (4)
  - Drug hypersensitivity [Recovered/Resolved]
  - Unresponsive to stimuli [Recovered/Resolved]
  - Cardiac arrest [Unknown]
  - Tachycardia [Unknown]

NARRATIVE: CASE EVENT DATE: 20241202
